FAERS Safety Report 7869049-0 (Version None)
Quarter: 2011Q4

REPORT INFORMATION
  Report Type: 
  Country: None (occurrence: None)
  Receive Date: 20111028
  Receipt Date: 20101227
  Transmission Date: 20120403
  Serious: No
  Sender: FDA-Public Use
  Company Number: US-AMGEN-USASP2010011789

PATIENT
  Age: 36 Year
  Sex: Female

DRUGS (2)
  1. ENBREL [Suspect]
     Dates: start: 20100701
  2. ENBREL [Suspect]
     Indication: PSORIASIS
     Dosage: 50 MG, 2 TIMES/WK
     Dates: start: 20100701

REACTIONS (12)
  - NAUSEA [None]
  - VOMITING [None]
  - PSORIASIS [None]
  - DRUG INEFFECTIVE [None]
  - NEPHROLITHIASIS [None]
  - FEELING COLD [None]
  - CHILLS [None]
  - BACK PAIN [None]
  - INJECTION SITE PRURITUS [None]
  - TEMPERATURE REGULATION DISORDER [None]
  - PRURITUS GENERALISED [None]
  - SKIN BURNING SENSATION [None]
